FAERS Safety Report 9262011 (Version 1)
Quarter: 2013Q2

REPORT INFORMATION
  Report Type: Spontaneous
  Country: FR (occurrence: FR)
  Receive Date: 20130429
  Receipt Date: 20130429
  Transmission Date: 20140414
  Serious: Yes (Hospitalization)
  Sender: FDA-Public Use
  Company Number: FR-AMGEN-FRASP2013028829

PATIENT
  Age: 75 Year
  Sex: Male

DRUGS (2)
  1. XGEVA [Suspect]
     Indication: METASTASES TO BONE
  2. CISPLATINE [Concomitant]
     Indication: METASTASES TO BONE

REACTIONS (3)
  - Renal failure acute [Unknown]
  - Aplasia [Unknown]
  - Hypocalcaemia [Unknown]
